FAERS Safety Report 22891791 (Version 3)
Quarter: 2023Q4

REPORT INFORMATION
  Report Type: Spontaneous
  Country: US (occurrence: US)
  Receive Date: 20230901
  Receipt Date: 20231105
  Transmission Date: 20240109
  Serious: Yes (Hospitalization)
  Sender: FDA-Public Use
  Company Number: US-JNJFOC-20230868678

PATIENT
  Age: 67 Year
  Sex: Female
  Weight: 71.4 kg

DRUGS (4)
  1. OPSUMIT [Suspect]
     Active Substance: MACITENTAN
     Indication: Product used for unknown indication
     Route: 048
  2. UPTRAVI [Suspect]
     Active Substance: SELEXIPAG
     Indication: Pulmonary arterial hypertension
     Route: 048
  3. ADEMPAS [Concomitant]
     Active Substance: RIOCIGUAT
  4. WARFARIN [Concomitant]
     Active Substance: WARFARIN

REACTIONS (5)
  - Hypotension [Unknown]
  - Heart rate decreased [Unknown]
  - Fall [Unknown]
  - Gait disturbance [Unknown]
  - Pain [Unknown]

NARRATIVE: CASE EVENT DATE: 20230822
